FAERS Safety Report 8005994-3 (Version None)
Quarter: 2011Q4

REPORT INFORMATION
  Report Type: 
  Country: None (occurrence: None)
  Receive Date: 20111226
  Receipt Date: 20111220
  Transmission Date: 20120403
  Serious: Yes (Other)
  Sender: FDA-Public Use
  Company Number: JP-BRISTOL-MYERS SQUIBB COMPANY-15822034

PATIENT
  Age: 84 Year
  Sex: Male

DRUGS (7)
  1. METHOTREXATE [Suspect]
     Dosage: DRUG DISCONTINUED.
     Dates: end: 20110502
  2. SULFASALAZINE [Concomitant]
     Dosage: DRUG DISCONTINUED.
  3. LOXONIN [Concomitant]
     Indication: RHEUMATOID ARTHRITIS
  4. ORENCIA [Suspect]
     Dosage: DOSE REDUCED TO 250 MG ON 15MAR2011,12APR,2MAY2011.
     Route: 041
     Dates: start: 20110216
  5. LANSOPRAZOLE [Concomitant]
     Indication: GASTROINTESTINAL INFLAMMATION
  6. PREDNISOLONE [Concomitant]
     Indication: RHEUMATOID ARTHRITIS
     Dosage: DOSE REDUCED TO 7.5MG ON 15/MAR/2011.
     Route: 048
  7. CELECOXIB [Concomitant]

REACTIONS (1)
  - WHITE BLOOD CELL COUNT INCREASED [None]
